FAERS Safety Report 7458659-0 (Version None)
Quarter: 2011Q2

REPORT INFORMATION
  Report Type: 
  Country: None (occurrence: None)
  Receive Date: 20110426
  Receipt Date: 20110420
  Transmission Date: 20111010
  Serious: Yes (Life-Threatening, Hospitalization)
  Sender: FDA-Public Use
  Company Number: 1000019222

PATIENT
  Age: 74 Year
  Sex: Male
  Weight: 69 kg

DRUGS (16)
  1. SPIRIVA (TIOTROPIUM BROMIDE) (TIOTROPIUM BROMIDE) [Concomitant]
  2. SOLOSIN (DROPS) [Concomitant]
  3. ASS (ACETYLSALICYLIC ACID) (ACETYLSALICYLIC ACID) [Concomitant]
  4. BISOPROLOL FUMARATE [Concomitant]
  5. IPRAMOL (IPRATROPIUM, ALBUTEROL) (IPRATROPIUM, ALBUTEROL) [Concomitant]
  6. BERODUAL (IPRATROPIUM, FENOTEROL) (IPRATROPIUM, FENOTEROL) [Concomitant]
  7. OLMESARTAN MEDOXOMIL [Concomitant]
  8. SIMVA (SIMVASTATIN) (SIMVASTATIN) [Concomitant]
  9. CALCIUM (CALCIUM WITH VITAMIN D) (CALCIUM WITH VITAMIN D) [Concomitant]
  10. ALENDRONATE (ALENDRONATE SODIUM) (ALENDRONATE SODIUM) [Concomitant]
  11. OXYGEN (OXYGEN) (OXYGEN) [Concomitant]
  12. ROFLUMILAST (ROFLUMILAST) (TABLETS) [Suspect]
     Indication: CHRONIC OBSTRUCTIVE PULMONARY DISEASE
     Dosage: 500 MCG,ORAL
     Route: 048
     Dates: start: 20110215, end: 20110308
  13. SYMBICORT (BUDESONIDE, FORMOTEROL FUMARATE) (BUDESONIDE FORMOTEROL FUM [Concomitant]
  14. L-THYROXINE (LEVOTHYROXINE SODIUM) (LEVOTHYROXINE SODIUM) [Concomitant]
  15. FOSTER DA (FOSTER DA) (FOSTER DA) [Concomitant]
  16. PANTOZOL (PANTOPRAZOLE) (PANTOPRAZOLE) [Concomitant]

REACTIONS (4)
  - C-REACTIVE PROTEIN INCREASED [None]
  - CHRONIC OBSTRUCTIVE PULMONARY DISEASE [None]
  - CONDITION AGGRAVATED [None]
  - DEPRESSED MOOD [None]
